FAERS Safety Report 8533121-2 (Version None)
Quarter: 2012Q3

REPORT INFORMATION
  Report Type: 
  Country: None (occurrence: None)
  Receive Date: 20120724
  Receipt Date: 20120716
  Transmission Date: 20120928
  Serious: Yes (Hospitalization)
  Sender: FDA-Public Use
  Company Number: US-JNJFOC-20120205615

PATIENT
  Sex: Male
  Weight: 47 kg

DRUGS (18)
  1. PROBIOTICS [Concomitant]
  2. MELATONIN [Concomitant]
  3. LACTOBACILLUS ACIDOPHILUS [Concomitant]
  4. OMEPRAZOLE [Concomitant]
  5. REMICADE [Suspect]
     Indication: IRRITABLE BOWEL SYNDROME
     Route: 042
     Dates: start: 20100722
  6. PREDNISONE [Concomitant]
  7. FOLIC ACID [Concomitant]
  8. ALLEGRA [Concomitant]
  9. TPN [Concomitant]
  10. MESALAMINE [Concomitant]
  11. PEPCID [Concomitant]
  12. VANCOMYCIN [Concomitant]
  13. IRON [Concomitant]
  14. SINGULAIR [Concomitant]
  15. HUMIRA [Concomitant]
     Dates: start: 20100930, end: 20110809
  16. HYDROCORTISONE [Concomitant]
     Indication: INFLAMMATORY BOWEL DISEASE
  17. ZOSYN [Concomitant]
  18. MERCAPTOPURINE [Concomitant]

REACTIONS (3)
  - PROCTITIS [None]
  - ILEOSTOMY CLOSURE [None]
  - PERITONITIS [None]
